FAERS Safety Report 8966682 (Version 1)
Quarter: 2012Q4

REPORT INFORMATION
  Report Type: Report from Study
  Country: DE (occurrence: DE)
  Receive Date: 20121217
  Receipt Date: 20121217
  Transmission Date: 20130627
  Serious: Yes (Death, Hospitalization)
  Sender: FDA-Public Use
  Company Number: DE-SANOFI-AVENTIS-2012SA091640

PATIENT
  Age: 84 Year
  Sex: Male
  Weight: 54 kg

DRUGS (8)
  1. JEVTANA [Suspect]
     Indication: HORMONE-REFRACTORY PROSTATE CANCER
     Route: 051
     Dates: start: 20121002, end: 20121002
  2. JEVTANA [Suspect]
     Indication: HORMONE-REFRACTORY PROSTATE CANCER
     Route: 051
     Dates: start: 20121120, end: 20121120
  3. PREDNISOLONE [Concomitant]
     Dates: start: 20121002
  4. DEXAMETHASONE [Concomitant]
     Dates: start: 20121002
  5. ZOMETA [Concomitant]
     Dates: start: 20110419
  6. ELIGARD [Concomitant]
     Dates: start: 20090622
  7. TRENANTONE [Concomitant]
     Dates: start: 20090622
  8. IRON PREPARATIONS [Concomitant]
     Dates: start: 20121120

REACTIONS (3)
  - Death [Fatal]
  - Dizziness [Not Recovered/Not Resolved]
  - Fatigue [Not Recovered/Not Resolved]
